FAERS Safety Report 7595114-1 (Version None)
Quarter: 2011Q2

REPORT INFORMATION
  Report Type: 
  Country: None (occurrence: None)
  Receive Date: 20110620
  Receipt Date: 20110407
  Transmission Date: 20111010
  Serious: Yes (Hospitalization)
  Sender: FDA-Public Use
  Company Number: UTC-005828

PATIENT
  Age: 30 Year
  Sex: Female
  Weight: 44 kg

DRUGS (6)
  1. TYVASO [Suspect]
     Indication: PULMONARY HYPERTENSION
     Dosage: 72 MCG (18 MCG, 4 IN 1 D), INHALATION
     Route: 055
     Dates: start: 20110303, end: 20110405
  2. CITALOPRAM HYDROBROMIDE [Concomitant]
  3. ASPIRIN [Concomitant]
  4. REVATIO [Concomitant]
  5. DILAUDID [Suspect]
     Indication: HEADACHE
  6. HALOPERIDOL [Concomitant]

REACTIONS (2)
  - HEADACHE [None]
  - MENTAL STATUS CHANGES [None]
